FAERS Safety Report 7918563-8 (Version None)
Quarter: 2011Q4

REPORT INFORMATION
  Report Type: 
  Country: None (occurrence: None)
  Receive Date: 20111116
  Receipt Date: 20110811
  Transmission Date: 20120403
  Serious: No
  Sender: FDA-Public Use
  Company Number: US-BAYER-2011-073751

PATIENT
  Age: 64 Year
  Sex: Female
  Weight: 82 kg

DRUGS (4)
  1. ALEVE (CAPLET) [Suspect]
     Indication: BACK PAIN
     Dosage: UNK
     Route: 048
     Dates: start: 20110808, end: 20110810
  2. JANUMET [Concomitant]
  3. NAPROXEN (ALEVE) [Suspect]
     Dosage: UNK
  4. ASPIRIN [Concomitant]

REACTIONS (1)
  - BACK PAIN [None]
